FAERS Safety Report 7383190-0 (Version None)
Quarter: 2011Q1

REPORT INFORMATION
  Report Type: 
  Country: None (occurrence: None)
  Receive Date: 20110325
  Receipt Date: 20110325
  Transmission Date: 20110831
  Serious: Yes (Hospitalization)
  Sender: FDA-Public Use
  Company Number: None

PATIENT
  Age: 70 Year
  Sex: Female

DRUGS (8)
  1. LEVOTHYROXINE [Concomitant]
  2. HYDROCHLOROTHIAZIDE [Concomitant]
  3. TRICOR [Concomitant]
  4. ETODOLAC [Suspect]
     Indication: ARTHRITIS
     Dosage: 400MG BID PO CHRONIC
     Route: 048
  5. COUMADIN [Suspect]
     Indication: ATRIAL FIBRILLATION
     Dosage: 2.5MG/5MG T W TH SS/MF PO CHRONIC
     Route: 048
  6. ATENOLOL [Concomitant]
  7. LISINOPRIL [Concomitant]
  8. AMLODIPINE [Concomitant]

REACTIONS (2)
  - GASTRIC ULCER [None]
  - INTERNATIONAL NORMALISED RATIO INCREASED [None]
